FAERS Safety Report 25828340 (Version 3)
Quarter: 2025Q4

REPORT INFORMATION
  Report Type: Report from Study
  Country: MX (occurrence: MX)
  Receive Date: 20250921
  Receipt Date: 20251112
  Transmission Date: 20260117
  Serious: Yes (Hospitalization)
  Sender: ABBVIE
  Company Number: MX-ABBVIE-6467089

PATIENT
  Age: 30 Year
  Sex: Male
  Weight: 68 kg

DRUGS (4)
  1. RINVOQ [Suspect]
     Active Substance: UPADACITINIB
     Indication: Dermatitis atopic
     Dosage: DOSAGE FORM: COATED TABLET, FORM STRENGTH 15 MG, 15 MG X 28?TABLETS
     Route: 048
     Dates: start: 20241216, end: 20250906
  2. Exomega [Concomitant]
     Indication: Dermatitis atopic
     Dosage: TOPICAL
  3. LOCOID [Concomitant]
     Active Substance: HYDROCORTISONE BUTYRATE
     Indication: Dermatitis atopic
     Dosage: TOPICAL
  4. CUTIVATE [Concomitant]
     Active Substance: FLUTICASONE PROPIONATE
     Indication: Dermatitis atopic
     Dosage: TOPICAL

REACTIONS (10)
  - Immunodeficiency [Not Recovered/Not Resolved]
  - Ophthalmic herpes zoster [Recovered/Resolved]
  - Eye swelling [Not Recovered/Not Resolved]
  - Herpes zoster [Recovered/Resolved]
  - Swelling [Not Recovered/Not Resolved]
  - Ophthalmic herpes zoster [Recovering/Resolving]
  - Herpes zoster [Recovering/Resolving]
  - Anxiety [Recovering/Resolving]
  - Pruritus [Not Recovered/Not Resolved]
  - Weight increased [Not Recovered/Not Resolved]

NARRATIVE: CASE EVENT DATE: 20250101
